FAERS Safety Report 5527033-6 (Version None)
Quarter: 2007Q4

REPORT INFORMATION
  Report Type: 
  Country: None (occurrence: None)
  Receive Date: 20071127
  Receipt Date: 20071120
  Transmission Date: 20080405
  Serious: Yes (Other)
  Sender: FDA-Public Use
  Company Number: US-GENENTECH-251326

PATIENT
  Sex: Male
  Weight: 132.88 kg

DRUGS (5)
  1. XOLAIR [Suspect]
     Indication: ASTHMA
     Dosage: 300 MG, SINGLE
     Route: 058
     Dates: start: 20071026, end: 20071113
  2. QVAR 40 [Concomitant]
     Indication: ASTHMA
     Dosage: 2 PUFF, BID
     Route: 048
  3. NASONEX [Concomitant]
     Indication: RHINITIS ALLERGIC
     Dosage: 2 UNK, QD
     Route: 045
  4. CLARITIN [Concomitant]
     Indication: DRUG USE FOR UNKNOWN INDICATION
     Dosage: 10 MG, PRN
     Route: 048
  5. SINGULAIR [Concomitant]
     Indication: ASTHMA
     Dosage: 10 MG, QD
     Route: 048

REACTIONS (8)
  - COUGH [None]
  - EYE PRURITUS [None]
  - FEELING HOT [None]
  - NASAL DISCOMFORT [None]
  - NAUSEA [None]
  - OEDEMA PERIPHERAL [None]
  - PRURITUS [None]
  - WHEEZING [None]
